FAERS Safety Report 10007394 (Version 1)
Quarter: 2014Q1

REPORT INFORMATION
  Report Type: Spontaneous
  Country: JP (occurrence: JP)
  Receive Date: 20140313
  Receipt Date: 20140313
  Transmission Date: 20141002
  Serious: Yes (Other)
  Sender: FDA-Public Use
  Company Number: JP-GLAXOSMITHKLINE-B0969139A

PATIENT
  Age: 31 Year
  Sex: Female

DRUGS (1)
  1. ARRANON [Suspect]
     Route: 042

REACTIONS (6)
  - Abasia [Recovering/Resolving]
  - Nervous system disorder [Recovering/Resolving]
  - Hypoaesthesia [Recovering/Resolving]
  - Hypoaesthesia [Recovering/Resolving]
  - Muscular weakness [Recovering/Resolving]
  - Gait disturbance [Recovering/Resolving]
